FAERS Safety Report 20899516 (Version 2)
Quarter: 2022Q2

REPORT INFORMATION
  Report Type: Spontaneous
  Country: AU (occurrence: AU)
  Receive Date: 20220601
  Receipt Date: 20220608
  Transmission Date: 20220721
  Serious: Yes (Life-Threatening, Hospitalization, Other)
  Sender: FDA-Public Use
  Company Number: AU-PFIZER INC-202200772595

PATIENT
  Age: 43 Year
  Sex: Female
  Weight: 55 kg

DRUGS (6)
  1. FENTANYL CITRATE [Suspect]
     Active Substance: FENTANYL CITRATE
     Dosage: LOW DOSE
  2. CLONIDINE [Suspect]
     Active Substance: CLONIDINE
     Dosage: UNK
  3. ACETAMINOPHEN\CHLORPHENIRAMINE\DEXTROMETHORPHAN HYDROBROMIDE\DOXYLAMIN [Suspect]
     Active Substance: ACETAMINOPHEN\CHLORPHENIRAMINE\DEXTROMETHORPHAN HYDROBROMIDE\DOXYLAMINE SUCCINATE\SODIUM BICARBONATE
     Dosage: UNK
     Route: 048
  4. PROPOFOL [Concomitant]
     Active Substance: PROPOFOL
     Dosage: UNK
  5. THIAMINE [Concomitant]
     Active Substance: THIAMINE
     Dosage: UNK
  6. MULTIVITAMIN [ASCORBIC ACID;CALCIUM CARBONATE;CYANOCOBALAMIN;NICOTINAM [Concomitant]
     Dosage: UNK

REACTIONS (2)
  - Impaired gastric emptying [Unknown]
  - Hepatic failure [Recovered/Resolved]
